FAERS Safety Report 8297135-2 (Version None)
Quarter: 2012Q2

REPORT INFORMATION
  Report Type: 
  Country: None (occurrence: None)
  Receive Date: 20120416
  Receipt Date: 20120406
  Transmission Date: 20120825
  Serious: Yes (Hospitalization)
  Sender: FDA-Public Use
  Company Number: 2012SP018705

PATIENT
  Age: 63 Year
  Sex: Female
  Weight: 50 kg

DRUGS (9)
  1. LEVOTHYROXINE SODIUM [Concomitant]
  2. CORINAEL [Concomitant]
  3. PEG-INTRON [Suspect]
     Indication: HEPATITIS C
     Dosage: 1.6 MCG/KG; QW; SC
     Route: 058
     Dates: start: 20120201
  4. TELAVIC (ANTIVIRAL NOS) [Suspect]
     Indication: HEPATITIS C
     Dosage: 2250;1500;750 MG, QD, PO
     Route: 048
     Dates: start: 20120201, end: 20120203
  5. TELAVIC (ANTIVIRAL NOS) [Suspect]
     Indication: HEPATITIS C
     Dosage: 2250;1500;750 MG, QD, PO
     Route: 048
     Dates: start: 20120227, end: 20120301
  6. TELAVIC (ANTIVIRAL NOS) [Suspect]
     Indication: HEPATITIS C
     Dosage: 2250;1500;750 MG, QD, PO
     Route: 048
     Dates: start: 20120220, end: 20120226
  7. REBETOL [Suspect]
     Indication: HEPATITIS C
     Dosage: 600;400; MG; QD; PO
     Route: 048
     Dates: start: 20120201, end: 20120203
  8. REBETOL [Suspect]
     Indication: HEPATITIS C
     Dosage: 600;400; MG; QD; PO
     Route: 048
     Dates: start: 20120314
  9. REBETOL [Suspect]
     Indication: HEPATITIS C
     Dosage: 600;400; MG; QD; PO
     Route: 048
     Dates: start: 20120214, end: 20120301

REACTIONS (6)
  - BLOOD URIC ACID INCREASED [None]
  - RENAL DISORDER [None]
  - URINE OUTPUT DECREASED [None]
  - BLOOD UREA INCREASED [None]
  - RHABDOMYOLYSIS [None]
  - BLOOD CREATININE INCREASED [None]
